FAERS Safety Report 6369042-3 (Version None)
Quarter: 2009Q3

REPORT INFORMATION
  Report Type: 
  Country: None (occurrence: None)
  Receive Date: 20090922
  Receipt Date: 20090911
  Transmission Date: 20100115
  Serious: Yes (Other)
  Sender: FDA-Public Use
  Company Number: PHHY2009DE39342

PATIENT
  Age: 80 Year
  Sex: Male

DRUGS (3)
  1. DIOVAN HCT [Suspect]
     Indication: HYPERTENSION
     Dosage: 1 DF, QD
     Route: 048
     Dates: start: 20090801
  2. PROSTATE GLAND EXTRACT [Concomitant]
  3. HOMEOPATHIC PREPARATIONS [Concomitant]

REACTIONS (1)
  - BRADYCARDIA [None]
